FAERS Safety Report 18223408 (Version 1)
Quarter: 2020Q3

REPORT INFORMATION
  Report Type: Spontaneous
  Country: FR (occurrence: FR)
  Receive Date: 20200902
  Receipt Date: 20200902
  Transmission Date: 20201103
  Serious: Yes (Life-Threatening)
  Sender: FDA-Public Use
  Company Number: FR-BAUSCH-BL-2020-024903

PATIENT
  Age: 66 Year
  Sex: Female
  Weight: 48 kg

DRUGS (1)
  1. TARGRETIN [Suspect]
     Active Substance: BEXAROTENE
     Indication: CUTANEOUS LYMPHOMA
     Route: 048
     Dates: start: 201909, end: 202007

REACTIONS (1)
  - Suicide attempt [Recovered/Resolved with Sequelae]

NARRATIVE: CASE EVENT DATE: 20200704
